FAERS Safety Report 10421038 (Version 1)
Quarter: 2014Q3

REPORT INFORMATION
  Report Type: Spontaneous
  Country: US (occurrence: None)
  Receive Date: 20140722
  Receipt Date: 20140722
  Transmission Date: 20150326
  Serious: No
  Sender: FDA-Public Use
  Company Number: 163-10004-14063914

PATIENT
  Age: 66 Year
  Sex: Female

DRUGS (6)
  1. VITAMIN B12(CYANOOOBALAMIN)(UNKNOWN) [Concomitant]
  2. CRESTOR(ROSUVASTATIN)(UNKNOWN) [Concomitant]
  3. FISH OIL(FISH OIL)(UNKNOWN) [Concomitant]
  4. OTEZLA [Suspect]
     Active Substance: APREMILAST
     Indication: PSORIATIC ARTHROPATHY
     Route: 048
     Dates: start: 20140603
  5. AZOR(ALPRAZOLAM)(UNKNOWN) [Concomitant]
  6. VITAMIN B COMPLEX(B-KOMPLEX ^LECIVA^)(UNKNOWN) [Concomitant]

REACTIONS (1)
  - Muscular weakness [None]

NARRATIVE: CASE EVENT DATE: 2014
